FAERS Safety Report 8812098 (Version 1)
Quarter: 2012Q4

REPORT INFORMATION
  Report Type: 
  Country: US (occurrence: US)
  Receive Date: 20120927
  Receipt Date: 20120927
  Transmission Date: 20130627
  Serious: Yes (Other)
  Sender: FDA-Public Use
  Company Number: US-BAYER-2012-097008

PATIENT
  Age: 75 Year
  Sex: Female
  Weight: 74.83 kg

DRUGS (5)
  1. ALEVE CAPLET/TABLET,MIDOL EXTENDED RELIEF CAPLET [Suspect]
     Indication: BACK PAIN
     Dosage: 1 DF, PRN
     Route: 048
     Dates: start: 201206
  2. PRILOSEC [Concomitant]
  3. COUMADIN [Concomitant]
  4. PRAVASTATIN [Concomitant]
  5. DIOVAN [Concomitant]

REACTIONS (5)
  - Diarrhoea [Recovered/Resolved]
  - Throat irritation [Recovered/Resolved]
  - Presyncope [Recovered/Resolved]
  - Hyperhidrosis [Recovered/Resolved]
  - Foreign body [Recovered/Resolved]
